FAERS Safety Report 6082543-0 (Version None)
Quarter: 2009Q1

REPORT INFORMATION
  Report Type: 
  Country: None (occurrence: None)
  Receive Date: 20090204
  Receipt Date: 20081118
  Transmission Date: 20090719
  Serious: Yes (Life-Threatening)
  Sender: FDA-Public Use
  Company Number: 277169

PATIENT
  Age: 67 Year
  Sex: Female
  Weight: 48.5 kg

DRUGS (8)
  1. NOVOLOG MIX 70/30 [Suspect]
     Indication: INSULIN-REQUIRING TYPE 2 DIABETES MELLITUS
     Dosage: 20 IU, BID, SUBCUTANEOUS ; 10 IU, BID, SUBCUTANEOUS ; TID 3 SHOTS PER DAY WITH MEALS, SUBCUTANEOUS
     Route: 058
     Dates: start: 20080501, end: 20080601
  2. NOVOLOG MIX 70/30 [Suspect]
     Indication: INSULIN-REQUIRING TYPE 2 DIABETES MELLITUS
     Dosage: 20 IU, BID, SUBCUTANEOUS ; 10 IU, BID, SUBCUTANEOUS ; TID 3 SHOTS PER DAY WITH MEALS, SUBCUTANEOUS
     Route: 058
     Dates: start: 20080601
  3. DILTIAZEM [Concomitant]
  4. ZETIA [Concomitant]
  5. LIPITOR [Concomitant]
  6. CILOSTAZOL [Concomitant]
  7. ASPIRIN [Concomitant]
  8. CALCIUM (CALCIUM) [Concomitant]

REACTIONS (1)
  - HYPOGLYCAEMIC UNCONSCIOUSNESS [None]
